FAERS Safety Report 4443481-X (Version None)
Quarter: 2004Q3

REPORT INFORMATION
  Report Type: 
  Country: None (occurrence: None)
  Receive Date: 20040901
  Receipt Date: 20040817
  Transmission Date: 20050211
  Serious: Yes (Death, Life-Threatening, Hospitalization)
  Sender: FDA-Public Use
  Company Number: 2004-BP-06433BP

PATIENT
  Age: 80 Year
  Sex: Female
  Weight: 70.8 kg

DRUGS (2)
  1. MOBIC [Suspect]
     Indication: OSTEOARTHRITIS
     Dosage: 15 MG, PO
     Route: 048
     Dates: start: 20040101, end: 20040730
  2. DARVOCET-N 100 [Concomitant]

REACTIONS (10)
  - ACUTE RESPIRATORY DISTRESS SYNDROME [None]
  - CEREBROVASCULAR ACCIDENT [None]
  - CHEST PAIN [None]
  - CONVULSION [None]
  - DUODENAL PERFORATION [None]
  - GASTRIC ULCER PERFORATION [None]
  - INTESTINAL PERFORATION [None]
  - RENAL FAILURE [None]
  - RENAL FAILURE CHRONIC [None]
  - SEPSIS [None]
